FAERS Safety Report 23128420 (Version 2)
Quarter: 2023Q4

REPORT INFORMATION
  Report Type: Spontaneous
  Country: US (occurrence: US)
  Receive Date: 20231031
  Receipt Date: 20231124
  Transmission Date: 20240109
  Serious: No
  Sender: FDA-Public Use
  Company Number: US-UNITED THERAPEUTICS-UNT-2023-030037

PATIENT
  Sex: Male

DRUGS (4)
  1. REMODULIN [Suspect]
     Active Substance: TREPROSTINIL
     Indication: Pulmonary arterial hypertension
     Dosage: 0.02050 ?G/KG, CONTINUING
     Route: 058
     Dates: start: 202310, end: 202310
  2. REMODULIN [Suspect]
     Active Substance: TREPROSTINIL
     Dosage: 0.020 ?G/KG, CONTINUING
     Route: 058
     Dates: start: 2023
  3. REMODULIN [Suspect]
     Active Substance: TREPROSTINIL
     Dosage: UNK, CONTINUING
     Route: 058
     Dates: start: 202310
  4. LECITHIN\POLOXAMER 407 [Suspect]
     Active Substance: LECITHIN\POLOXAMER 407
     Indication: Infusion site pain
     Dosage: UNK
     Route: 065
     Dates: start: 202310

REACTIONS (10)
  - Infusion site discomfort [Recovered/Resolved]
  - Infusion site pain [Unknown]
  - Treatment noncompliance [Unknown]
  - Device wireless communication issue [Recovered/Resolved]
  - Device defective [Recovered/Resolved]
  - Device infusion issue [Recovered/Resolved]
  - Device failure [Unknown]
  - Device issue [Unknown]
  - Device dislocation [Unknown]
  - Device failure [Unknown]

NARRATIVE: CASE EVENT DATE: 20230101
